FAERS Safety Report 6804073-8 (Version None)
Quarter: 2010Q2

REPORT INFORMATION
  Report Type: 
  Country: None (occurrence: None)
  Receive Date: 20100628
  Receipt Date: 20070122
  Transmission Date: 20101027
  Serious: Yes (Hospitalization, Other)
  Sender: FDA-Public Use
  Company Number: US-PFIZER INC-2006141256

PATIENT
  Sex: Male
  Weight: 75.75 kg

DRUGS (7)
  1. SUTENT [Suspect]
     Indication: RENAL CELL CARCINOMA
     Dates: start: 20061024, end: 20061106
  2. VYTORIN [Concomitant]
  3. SOTALOL [Concomitant]
  4. PAXIL [Concomitant]
  5. NORVASC [Concomitant]
  6. BENICAR [Concomitant]
  7. HYDROCODONE [Concomitant]

REACTIONS (2)
  - EPISTAXIS [None]
  - HAEMOGLOBIN DECREASED [None]
